FAERS Safety Report 5133510-2 (Version None)
Quarter: 2006Q4

REPORT INFORMATION
  Report Type: 
  Country: None (occurrence: None)
  Receive Date: 20061018
  Receipt Date: 20061005
  Transmission Date: 20070319
  Serious: Yes (Other)
  Sender: FDA-Public Use
  Company Number: 2006122804

PATIENT
  Sex: Male
  Weight: 128.368 kg

DRUGS (9)
  1. ZYRTEC [Suspect]
     Indication: HYPERSENSITIVITY
     Dosage: 10 MG (10 MG, 1 IN 1 D)
     Dates: end: 20060101
  2. FLUOXETINE [Suspect]
     Indication: DEPRESSION
  3. LIPITOR [Concomitant]
  4. ASPIRIN [Concomitant]
  5. LISINOPRIL [Concomitant]
  6. FUROSEMIDE             (FUROSEDMIDE) [Concomitant]
  7. VIAGRA [Concomitant]
  8. XANAX [Concomitant]
  9. TOPROL-XL [Concomitant]

REACTIONS (22)
  - ACTIVITIES OF DAILY LIVING IMPAIRED [None]
  - ANXIETY [None]
  - ASTHENIA [None]
  - BLOOD POTASSIUM DECREASED [None]
  - CORONARY ARTERY BYPASS [None]
  - DEPRESSION [None]
  - DIZZINESS [None]
  - DRY MOUTH [None]
  - EOSINOPHIL COUNT INCREASED [None]
  - ERECTILE DYSFUNCTION [None]
  - FATIGUE [None]
  - FEELING ABNORMAL [None]
  - FLUID RETENTION [None]
  - HIGH DENSITY LIPOPROTEIN DECREASED [None]
  - IMPAIRED WORK ABILITY [None]
  - INCORRECT DOSE ADMINISTERED [None]
  - INSOMNIA [None]
  - LOW DENSITY LIPOPROTEIN INCREASED [None]
  - NEURALGIA [None]
  - PANIC ATTACK [None]
  - SOMNOLENCE [None]
  - WEIGHT INCREASED [None]
